FAERS Safety Report 20170949 (Version 1)
Quarter: 2021Q4

REPORT INFORMATION
  Report Type: Spontaneous
  Country: US (occurrence: US)
  Receive Date: 20211210
  Receipt Date: 20211210
  Transmission Date: 20220303
  Serious: Yes (Death, Other)
  Sender: FDA-Public Use
  Company Number: US-AMGEN-USASP2021188000

PATIENT

DRUGS (5)
  1. RITUXIMAB [Suspect]
     Active Substance: RITUXIMAB
     Indication: Immunosuppressant drug therapy
     Dosage: UNK
     Route: 065
  2. RITUXIMAB [Suspect]
     Active Substance: RITUXIMAB
     Indication: Off label use
  3. PREDNISONE [Concomitant]
     Active Substance: PREDNISONE
  4. BENDAMUSTINE [Concomitant]
     Active Substance: BENDAMUSTINE
  5. METHOTREXATE [Concomitant]
     Active Substance: METHOTREXATE

REACTIONS (5)
  - Death [Fatal]
  - Disease progression [Fatal]
  - Off label use [Unknown]
  - Herpes simplex [Unknown]
  - Varicella zoster virus infection [Unknown]
